FAERS Safety Report 6273789-7 (Version None)
Quarter: 2009Q3

REPORT INFORMATION
  Report Type: 
  Country: None (occurrence: None)
  Receive Date: 20090720
  Receipt Date: 20090709
  Transmission Date: 20100115
  Serious: Yes (Hospitalization, Other)
  Sender: FDA-Public Use
  Company Number: B0582823B

PATIENT
  Sex: Male

DRUGS (1)
  1. AVANDAMET [Suspect]
     Route: 048
     Dates: start: 20060804

REACTIONS (7)
  - AORTIC STENOSIS [None]
  - CARDIAC FAILURE [None]
  - CONDITION AGGRAVATED [None]
  - CORONARY ARTERY INSUFFICIENCY [None]
  - CORONARY ARTERY STENOSIS [None]
  - LEFT VENTRICULAR FAILURE [None]
  - LEFT VENTRICULAR HYPERTROPHY [None]
